FAERS Safety Report 15574412 (Version 3)
Quarter: 2019Q4

REPORT INFORMATION
  Report Type: Report from Study
  Country: GT (occurrence: GT)
  Receive Date: 20181101
  Receipt Date: 20191110
  Transmission Date: 20200122
  Serious: Yes (Other)
  Sender: FDA-Public Use
  Company Number: PHHY2018GT142826

PATIENT
  Age: 54 Year
  Sex: Female
  Weight: 78.01 kg

DRUGS (6)
  1. CARBAMAZEPINE. [Suspect]
     Active Substance: CARBAMAZEPINE
     Indication: PAIN IN EXTREMITY
  2. LANSOPRAZOLE. [Concomitant]
     Active Substance: LANSOPRAZOLE
     Indication: GASTRITIS
     Dosage: 1 DF, QD (BEFORE BREAKFAST)
     Route: 065
  3. CARBAMAZEPINE. [Suspect]
     Active Substance: CARBAMAZEPINE
     Indication: DYSKINESIA
     Dosage: UNK
     Route: 065
  4. GILENYA [Suspect]
     Active Substance: FINGOLIMOD HYDROCHLORIDE
     Indication: MULTIPLE SCLEROSIS
     Dosage: UNK UNK, QD (EVERY NIGHT)
     Route: 048
  5. RIVOTRIL [Concomitant]
     Active Substance: CLONAZEPAM
     Indication: PROPHYLAXIS
     Dosage: 2 DF
     Route: 065
  6. VALPROIC ACID. [Concomitant]
     Active Substance: VALPROIC ACID
     Indication: SEIZURE
     Dosage: 2 DF(100MG), QD
     Route: 065

REACTIONS (21)
  - Facial paralysis [Unknown]
  - Malaise [Unknown]
  - Multiple sclerosis relapse [Unknown]
  - Seizure [Unknown]
  - Feeling abnormal [Unknown]
  - Dysuria [Recovered/Resolved]
  - Muscular weakness [Unknown]
  - Hernia [Unknown]
  - Weight increased [Unknown]
  - Headache [Unknown]
  - Insomnia [Unknown]
  - Hemiparesis [Unknown]
  - Fatigue [Unknown]
  - Tension [Unknown]
  - Gastritis [Unknown]
  - Loss of consciousness [Unknown]
  - Peripheral swelling [Unknown]
  - Gait disturbance [Not Recovered/Not Resolved]
  - Speech disorder [Unknown]
  - Fall [Unknown]
  - Dysstasia [Unknown]

NARRATIVE: CASE EVENT DATE: 20191030
